FAERS Safety Report 8786480 (Version 4)
Quarter: 2012Q4

REPORT INFORMATION
  Report Type: 
  Country: US (occurrence: US)
  Receive Date: 20120914
  Receipt Date: 20121031
  Transmission Date: 20130627
  Serious: Yes (Hospitalization, Other)
  Sender: FDA-Public Use
  Company Number: PHEH2012US017752

PATIENT
  Age: 47 None
  Sex: Male

DRUGS (1)
  1. AREDIA [Suspect]

REACTIONS (55)
  - Pyrexia [Unknown]
  - Musculoskeletal chest pain [Unknown]
  - Musculoskeletal pain [Unknown]
  - Urinary hesitation [Unknown]
  - Dysuria [Unknown]
  - Ligament sprain [Unknown]
  - Spinal cord compression [Unknown]
  - Spinal disorder [Unknown]
  - Bone cancer [Unknown]
  - Adenocarcinoma [Unknown]
  - Spinal compression fracture [Unknown]
  - Plasmacytoma [Unknown]
  - Metastases to bone [Unknown]
  - Tooth abscess [Unknown]
  - Atelectasis [Unknown]
  - Hypercalcaemia [Unknown]
  - Presyncope [Unknown]
  - Axonal neuropathy [Unknown]
  - Dyspepsia [Unknown]
  - Skin lesion [Unknown]
  - Glaucoma [Unknown]
  - Haemorrhage [Unknown]
  - Bone marrow failure [Unknown]
  - Joint swelling [Unknown]
  - Herpes simplex [Unknown]
  - Rib fracture [Unknown]
  - Anisocytosis [Unknown]
  - Viral infection [Unknown]
  - Scoliosis [Unknown]
  - Plasma cell myeloma [Unknown]
  - Paraparesis [Unknown]
  - Benign bone neoplasm [Unknown]
  - Injury [Unknown]
  - Alopecia [Unknown]
  - Febrile neutropenia [Unknown]
  - Pruritus [Unknown]
  - Neck pain [Unknown]
  - Chest pain [Unknown]
  - Radicular pain [Unknown]
  - Asthenia [Unknown]
  - Hypoaesthesia [Unknown]
  - Paraesthesia [Unknown]
  - Back pain [Unknown]
  - Cough [Unknown]
  - Oedema [Unknown]
  - Constipation [Unknown]
  - Nausea [Unknown]
  - Vomiting [Unknown]
  - Headache [Unknown]
  - Diarrhoea [Unknown]
  - Fatigue [Unknown]
  - Bone pain [Unknown]
  - Stomatitis [Unknown]
  - Bursitis [Unknown]
  - Muscle spasms [Unknown]
